FAERS Safety Report 15500154 (Version 1)
Quarter: 2018Q4

REPORT INFORMATION
  Report Type: Spontaneous
  Country: ZA (occurrence: ZA)
  Receive Date: 20181015
  Receipt Date: 20181015
  Transmission Date: 20190205
  Serious: Yes (Hospitalization)
  Sender: FDA-Public Use
  Company Number: ZA-BAYER-2018-189617

PATIENT
  Age: 61 Year
  Sex: Female

DRUGS (4)
  1. UTROGESTAN [Suspect]
     Active Substance: PROGESTERONE
     Dosage: UNK
     Dates: start: 20150401
  2. MIRENA [Suspect]
     Active Substance: LEVONORGESTREL
     Indication: CONTRACEPTION
     Dosage: 20 MCG/24HR, CONT
     Route: 015
     Dates: start: 2010, end: 2015
  3. MIRENA [Suspect]
     Active Substance: LEVONORGESTREL
     Indication: PREVENTION OF ENDOMETRIAL HYPERPLASIA
  4. ESTRADIOL. [Suspect]
     Active Substance: ESTRADIOL
     Dosage: UNK

REACTIONS (1)
  - Breast cancer stage I [None]
